FAERS Safety Report 9015697 (Version 1)
Quarter: 2013Q1

REPORT INFORMATION
  Report Type: Spontaneous
  Country: IT (occurrence: None)
  Receive Date: 20130103
  Receipt Date: 20130103
  Transmission Date: 20140127
  Serious: Yes (Hospitalization)
  Sender: FDA-Public Use
  Company Number: SP06308

PATIENT
  Age: 56 Year
  Sex: Male

DRUGS (6)
  1. XIFAXAN [Suspect]
     Route: 048
     Dates: start: 20120603, end: 20120603
  2. RISPERDAL [Suspect]
     Route: 048
     Dates: start: 20120603, end: 20120603
  3. PLAVIX [Suspect]
     Route: 048
     Dates: start: 20120603, end: 20120603
  4. EFFERALGAN CODEINE [Suspect]
     Dosage: (8 DOSAGE FORMS)
     Route: 048
     Dates: start: 20120603, end: 20120603
  5. ZYLORIC [Suspect]
     Route: 048
     Dates: start: 20120603, end: 20120603
  6. OMEPRAZOLE [Suspect]
     Route: 048
     Dates: start: 20120603, end: 20120603

REACTIONS (4)
  - Suicidal ideation [None]
  - Coma [None]
  - Miosis [None]
  - Self injurious behaviour [None]
